FAERS Safety Report 22385909 (Version 1)
Quarter: 2023Q2

REPORT INFORMATION
  Report Type: Report from Study
  Country: GB (occurrence: GB)
  Receive Date: 20230530
  Receipt Date: 20230530
  Transmission Date: 20230722
  Serious: Yes (Hospitalization, Other)
  Sender: FDA-Public Use
  Company Number: GB-ROCHE-3351439

PATIENT
  Age: 28 Year
  Sex: Female

DRUGS (9)
  1. PACLITAXEL [Suspect]
     Active Substance: PACLITAXEL
     Indication: Non-small cell lung cancer metastatic
     Route: 065
     Dates: start: 20191031
  2. BEVACIZUMAB [Suspect]
     Active Substance: BEVACIZUMAB
     Indication: Non-small cell lung cancer metastatic
     Dosage: 900 MG
  3. CARBOPLATIN [Suspect]
     Active Substance: CARBOPLATIN
     Indication: Non-small cell lung cancer metastatic
     Dosage: 500 MG
  4. ATEZOLIZUMAB [Suspect]
     Active Substance: ATEZOLIZUMAB
     Indication: Non-small cell lung cancer metastatic
     Route: 041
     Dates: start: 20191009
  5. CALCIUM CARBONATE\CHOLECALCIFEROL [Concomitant]
     Active Substance: CALCIUM CARBONATE\CHOLECALCIFEROL
  6. APIXABAN [Concomitant]
     Active Substance: APIXABAN
  7. CETRABEN [LIGHT LIQUID PARAFFIN;WHITE SOFT PARAFFIN] [Concomitant]
  8. DERMOL [BENZALKONIUM CHLORIDE;CHLORHEXIDINE HYDROCHLORIDE;ISOPROPYL MY [Concomitant]
  9. FERROUS SULFATE [Concomitant]
     Active Substance: FERROUS SULFATE

REACTIONS (1)
  - Pneumonitis [Recovered/Resolved]

NARRATIVE: CASE EVENT DATE: 20191018
